FAERS Safety Report 4483922-5 (Version None)
Quarter: 2004Q4

REPORT INFORMATION
  Report Type: 
  Country: None (occurrence: None)
  Receive Date: 20041020
  Receipt Date: 20041012
  Transmission Date: 20050328
  Serious: Yes (Hospitalization)
  Sender: FDA-Public Use
  Company Number: 2004UW18448

PATIENT
  Age: 71 Year
  Sex: Female
  Weight: 117.9352 kg

DRUGS (3)
  1. NEXIUM [Suspect]
     Indication: GASTROOESOPHAGEAL REFLUX DISEASE
     Dosage: 40 MG HS PO
     Route: 048
     Dates: start: 20010101
  2. ATENOLOL [Concomitant]
  3. GENERIC THYROID MEDICINE [Concomitant]

REACTIONS (5)
  - BLOOD CREATINE PHOSPHOKINASE INCREASED [None]
  - BLOOD PRESSURE INCREASED [None]
  - FEELING ABNORMAL [None]
  - HEART RATE IRREGULAR [None]
  - NAUSEA [None]
